FAERS Safety Report 23604605 (Version 3)
Quarter: 2024Q2

REPORT INFORMATION
  Report Type: Spontaneous
  Country: KR (occurrence: KR)
  Receive Date: 20240307
  Receipt Date: 20240403
  Transmission Date: 20240716
  Serious: Yes (Death, Life-Threatening, Hospitalization)
  Sender: FDA-Public Use
  Company Number: KR-Accord-410181

PATIENT
  Age: 69 Year
  Sex: Male
  Weight: 64 kg

DRUGS (37)
  1. GEMCITABINE [Suspect]
     Active Substance: GEMCITABINE
     Indication: Diffuse large B-cell lymphoma stage II
     Dosage: C1D2
     Route: 042
     Dates: start: 20220329, end: 20220329
  2. OXALIPLATIN [Suspect]
     Active Substance: OXALIPLATIN
     Indication: Diffuse large B-cell lymphoma stage II
     Dosage: C1D2
     Route: 042
     Dates: start: 20220329, end: 20220329
  3. RITUXIMAB [Concomitant]
     Active Substance: RITUXIMAB
     Indication: Diffuse large B-cell lymphoma stage II
     Dosage: C1D1
     Route: 042
     Dates: start: 20220329, end: 20220329
  4. BARACLUDE [Concomitant]
     Active Substance: ENTECAVIR
     Dates: start: 20210915
  5. BISOPROLOL FUMARATE [Concomitant]
     Active Substance: BISOPROLOL FUMARATE
     Dates: start: 20210607
  6. HEPARIN SODIUM [Concomitant]
     Active Substance: HEPARIN SODIUM
     Dates: start: 20210624
  7. JANUMET [Concomitant]
     Active Substance: METFORMIN HYDROCHLORIDE\SITAGLIPTIN PHOSPHATE
     Dates: start: 202103
  8. LASIX [Concomitant]
     Active Substance: FUROSEMIDE
     Dates: start: 20210607
  9. CALCIUM GLUCONATE [Concomitant]
     Active Substance: CALCIUM GLUCONATE
     Dosage: 10 PERCENT
     Dates: start: 20220528, end: 20220529
  10. CHLORPHENIRAMINE [Concomitant]
     Active Substance: CHLORPHENIRAMINE
     Dates: start: 20220528, end: 20220529
  11. AMBROXOL [Concomitant]
     Active Substance: AMBROXOL
     Dates: start: 20220529, end: 20220529
  12. EPINEPHRINE [Concomitant]
     Active Substance: EPINEPHRINE
     Dates: start: 20220529, end: 20220529
  13. ALBUMIN HUMAN [Concomitant]
     Active Substance: ALBUMIN HUMAN
     Dates: start: 20220528, end: 20220528
  14. ALBUMIN HUMAN [Concomitant]
     Active Substance: ALBUMIN HUMAN
     Dosage: 20 PERCENT
     Dates: start: 20220528, end: 20220528
  15. DEXMEDETOMIDINE [Concomitant]
     Active Substance: DEXMEDETOMIDINE
     Dates: start: 20220528, end: 20220528
  16. NAFAMOSTAT MESYLATE [Concomitant]
     Active Substance: NAFAMOSTAT MESYLATE
     Dates: start: 20220529, end: 20220529
  17. FILGRASTIM [Concomitant]
     Active Substance: FILGRASTIM
     Dates: start: 20220528, end: 20220529
  18. LIPITOR [Concomitant]
     Active Substance: ATORVASTATIN CALCIUM
     Dates: start: 202103
  19. MAGNESIUM SULFATE [Concomitant]
     Active Substance: MAGNESIUM SULFATE\MAGNESIUM SULFATE HEPTAHYDRATE
     Dates: start: 20220528, end: 20220528
  20. SODIUM BICARBONATE [Concomitant]
     Active Substance: SODIUM BICARBONATE
     Dates: start: 20220529, end: 20220529
  21. REMIFENTANIL [Concomitant]
     Active Substance: REMIFENTANIL
     Dates: start: 20220528, end: 20220528
  22. PANTOPRAZOLE [Concomitant]
     Active Substance: PANTOPRAZOLE
     Dates: start: 20220528, end: 20220529
  23. NOREPINEPHRINE [Concomitant]
     Active Substance: NOREPINEPHRINE\NOREPINEPHRINE BITARTRATE
     Dates: start: 20220528, end: 20220529
  24. GLUCOSE W/SODIUM CHLORIDE [Concomitant]
     Dates: start: 20220529, end: 20220529
  25. INSULIN NOS [Concomitant]
     Active Substance: INSULIN NOS
     Dates: start: 20220529, end: 20220529
  26. MIDAZOLAM [Concomitant]
     Active Substance: MIDAZOLAM
     Dates: start: 20220528, end: 20220528
  27. NOVORAPID [Concomitant]
     Active Substance: INSULIN ASPART
     Dates: start: 202103
  28. INSULIN DEGLUDEC [Concomitant]
     Active Substance: INSULIN DEGLUDEC
     Dates: start: 202103
  29. ISONIAZID [Concomitant]
     Active Substance: ISONIAZID
     Dates: start: 20220328
  30. VASOPRESSIN [Concomitant]
     Active Substance: VASOPRESSIN
     Dates: start: 20220528, end: 20220529
  31. VECURONIUM [Concomitant]
     Active Substance: VECURONIUM BROMIDE
     Dates: start: 20220528, end: 20220528
  32. RITUXIMAB [Concomitant]
     Active Substance: RITUXIMAB
     Indication: Diffuse large B-cell lymphoma stage II
     Dosage: C1D15
     Route: 042
     Dates: start: 20220419, end: 20220419
  33. RITUXIMAB [Concomitant]
     Active Substance: RITUXIMAB
     Indication: Diffuse large B-cell lymphoma stage II
     Dosage: C2D1-C2D15
     Route: 042
     Dates: start: 20220510, end: 20220524
  34. OXALIPLATIN [Suspect]
     Active Substance: OXALIPLATIN
     Indication: Diffuse large B-cell lymphoma stage II
     Dosage: C1D16
     Route: 042
     Dates: start: 20220419, end: 20220419
  35. OXALIPLATIN [Suspect]
     Active Substance: OXALIPLATIN
     Indication: Diffuse large B-cell lymphoma stage II
     Dosage: C2D2 - C2D16
     Route: 042
     Dates: start: 20220510, end: 20220524
  36. GEMCITABINE [Suspect]
     Active Substance: GEMCITABINE
     Indication: Diffuse large B-cell lymphoma stage II
     Dosage: C1D16
     Route: 042
     Dates: start: 20220419, end: 20220419
  37. GEMCITABINE [Suspect]
     Active Substance: GEMCITABINE
     Indication: Diffuse large B-cell lymphoma stage II
     Dosage: C2D2 - C2D16
     Route: 042
     Dates: start: 20220510, end: 20220524

REACTIONS (1)
  - Pneumonia [Fatal]

NARRATIVE: CASE EVENT DATE: 20220528
